FAERS Safety Report 26026407 (Version 2)
Quarter: 2025Q4

REPORT INFORMATION
  Report Type: Spontaneous
  Country: AR (occurrence: AR)
  Receive Date: 20251111
  Receipt Date: 20251218
  Transmission Date: 20260118
  Serious: No
  Sender: PFIZER
  Company Number: AR-PFIZER INC-202500220096

PATIENT
  Age: 13 Year
  Sex: Male

DRUGS (1)
  1. GENOTROPIN [Suspect]
     Active Substance: SOMATROPIN
     Indication: Foetal growth restriction
     Dosage: 1.4 MG, 7 TIMES PER WEEK
     Dates: start: 202310

REACTIONS (4)
  - Device use issue [Unknown]
  - Product quality issue [Unknown]
  - Product communication issue [Unknown]
  - Drug dose omission by device [Unknown]

NARRATIVE: CASE EVENT DATE: 20251001
